FAERS Safety Report 17239311 (Version 3)
Quarter: 2020Q1

REPORT INFORMATION
  Report Type: Spontaneous
  Country: US (occurrence: US)
  Receive Date: 20200106
  Receipt Date: 20200312
  Transmission Date: 20200409
  Serious: Yes (Hospitalization)
  Sender: FDA-Public Use
  Company Number: US-ABBVIE-19K-163-3002539-00

PATIENT
  Sex: Male
  Weight: 86.26 kg

DRUGS (7)
  1. VALACYCLOVIR [Concomitant]
     Active Substance: VALACYCLOVIR HYDROCHLORIDE
     Indication: INFECTION PROPHYLAXIS
  2. VENETOCLAX. [Suspect]
     Active Substance: VENETOCLAX
     Indication: CHRONIC MYELOMONOCYTIC LEUKAEMIA
     Route: 048
     Dates: start: 201909, end: 2019
  3. VENETOCLAX. [Suspect]
     Active Substance: VENETOCLAX
     Dosage: WITH POSACONAZOLE ONGOING NO
     Route: 048
     Dates: start: 2019, end: 201911
  4. VENETOCLAX. [Suspect]
     Active Substance: VENETOCLAX
     Dosage: WITH CASPOFUNGIN ONGOING NO
     Route: 048
     Dates: start: 2019, end: 2019
  5. CASPOFUNGIN [Concomitant]
     Active Substance: CASPOFUNGIN
     Indication: INFECTION PROPHYLAXIS
     Route: 048
  6. POSACONAZOLE [Concomitant]
     Active Substance: POSACONAZOLE
     Indication: INFECTION PROPHYLAXIS
     Route: 048
  7. LEVOFLOXACIN. [Concomitant]
     Active Substance: LEVOFLOXACIN
     Indication: INFECTION PROPHYLAXIS
     Route: 048

REACTIONS (7)
  - Internal haemorrhage [Recovered/Resolved]
  - Off label use [Unknown]
  - Cardiac disorder [Recovered/Resolved]
  - Renal disorder [Recovered/Resolved]
  - Fall [Unknown]
  - Mobility decreased [Not Recovered/Not Resolved]
  - Dyspepsia [Recovered/Resolved]

NARRATIVE: CASE EVENT DATE: 2019
